FAERS Safety Report 11230485 (Version 2)
Quarter: 2015Q3

REPORT INFORMATION
  Report Type: Report from Study
  Country: CA (occurrence: CA)
  Receive Date: 20150701
  Receipt Date: 20150805
  Transmission Date: 20151125
  Serious: Yes (Other)
  Sender: FDA-Public Use
  Company Number: PHHY2012CA065792

PATIENT
  Age: 45 Year
  Sex: Female

DRUGS (1)
  1. SANDOSTATIN LAR DEPOT [Suspect]
     Active Substance: OCTREOTIDE ACETATE
     Indication: NEUROENDOCRINE TUMOUR
     Dosage: 30 MG, QMO
     Route: 030
     Dates: start: 20100512

REACTIONS (6)
  - Blood pressure increased [Unknown]
  - Kidney infection [Unknown]
  - Malaise [Unknown]
  - Gastrointestinal sounds abnormal [Unknown]
  - Faeces discoloured [Unknown]
  - Abdominal distension [Unknown]

NARRATIVE: CASE EVENT DATE: 20120727
